FAERS Safety Report 5140620-2 (Version None)
Quarter: 2006Q4

REPORT INFORMATION
  Report Type: 
  Country: None (occurrence: None)
  Receive Date: 20061025
  Receipt Date: 20061009
  Transmission Date: 20070319
  Serious: Yes (Hospitalization)
  Sender: FDA-Public Use
  Company Number: DSA_28843_2006

PATIENT
  Age: 54 Year

DRUGS (6)
  1. LORAZEPAM [Suspect]
     Dosage: 2.5 MG Q DAY
  2. CLOZAPINE [Suspect]
     Indication: SCHIZOPHRENIA, PARANOID TYPE
     Dosage: VAR Q DAY
     Dates: end: 20060503
  3. FLUPENTIXOL [Concomitant]
  4. AKINETON/00079502 [Suspect]
     Dosage: DF
  5. FLUANXOL/00109702/ [Suspect]
     Dosage: 100 MG
     Dates: start: 20060502
  6. PROPRANOLOL HCL [Suspect]
     Dosage: 40 MG Q DAY

REACTIONS (3)
  - DELIRIUM [None]
  - INFECTION [None]
  - WHITE BLOOD CELL COUNT INCREASED [None]
